FAERS Safety Report 4958483-4 (Version None)
Quarter: 2006Q1

REPORT INFORMATION
  Report Type: 
  Country: None (occurrence: None)
  Receive Date: 20060127
  Receipt Date: 20050620
  Transmission Date: 20060701
  Serious: Yes (Hospitalization)
  Sender: FDA-Public Use
  Company Number: 05-06-1085

PATIENT
  Age: 46 Year
  Sex: Female
  Weight: 88.4514 kg

DRUGS (1)
  1. CLOZAPINE [Suspect]
     Dosage: 25-900 MG QD, ORAL
     Route: 048
     Dates: start: 20040301, end: 20050401

REACTIONS (4)
  - CHEST PAIN [None]
  - DEPRESSION [None]
  - DRUG SCREEN POSITIVE [None]
  - HALLUCINATION, AUDITORY [None]
